FAERS Safety Report 12138822 (Version 2)
Quarter: 2016Q2

REPORT INFORMATION
  Report Type: Spontaneous
  Country: US (occurrence: US)
  Receive Date: 20160302
  Receipt Date: 20160429
  Transmission Date: 20160815
  Serious: Yes (Hospitalization)
  Sender: FDA-Public Use
  Company Number: US-BAYER-2016-041127

PATIENT
  Age: 17 Year
  Sex: Female
  Weight: 61.22 kg

DRUGS (1)
  1. MIRENA [Suspect]
     Active Substance: LEVONORGESTREL
     Indication: CONTRACEPTION
     Dosage: 20 MCG/24HR, CONT
     Route: 015
     Dates: start: 20120912, end: 20131124

REACTIONS (11)
  - Uterine perforation [None]
  - Ovarian cyst [None]
  - Device issue [None]
  - Device use error [None]
  - Enterocolitis infectious [None]
  - Depression [None]
  - Pelvic inflammatory disease [None]
  - Abdominal pain lower [None]
  - Ovarian abscess [None]
  - Sepsis [None]
  - Anxiety [None]

NARRATIVE: CASE EVENT DATE: 2012
